FAERS Safety Report 9980345 (Version 1)
Quarter: 2014Q1

REPORT INFORMATION
  Report Type: Report from Study
  Country: US (occurrence: US)
  Receive Date: 20140307
  Receipt Date: 20140307
  Transmission Date: 20141002
  Serious: No
  Sender: FDA-Public Use
  Company Number: US-ABBVIE-13P-163-1174584-00

PATIENT
  Age: 41 Year
  Sex: Male

DRUGS (6)
  1. HUMIRA [Suspect]
     Indication: COLITIS ULCERATIVE
     Dates: start: 201310
  2. ASACOL [Concomitant]
     Indication: COLITIS ULCERATIVE
  3. IMURAN [Concomitant]
     Indication: COLITIS ULCERATIVE
  4. OMEPRAZOLE [Concomitant]
     Indication: GASTROOESOPHAGEAL REFLUX DISEASE
  5. FOLIC ACID [Concomitant]
     Indication: PRODUCT USED FOR UNKNOWN INDICATION
  6. UCERIS [Concomitant]
     Indication: COLITIS ULCERATIVE

REACTIONS (1)
  - Sinusitis [Not Recovered/Not Resolved]
